FAERS Safety Report 7464210-1 (Version None)
Quarter: 2011Q2

REPORT INFORMATION
  Report Type: 
  Country: None (occurrence: None)
  Receive Date: 20110506
  Receipt Date: 20110427
  Transmission Date: 20111010
  Serious: Yes (Hospitalization, Other)
  Sender: FDA-Public Use
  Company Number: US-ASTRAZENECA-2010SE22922

PATIENT
  Age: 52 Year
  Sex: Female

DRUGS (8)
  1. NEXIUM [Suspect]
     Indication: GASTROOESOPHAGEAL REFLUX DISEASE
     Route: 048
     Dates: start: 20050301
  2. THYROID TAB [Concomitant]
  3. PRILOSEC [Suspect]
     Indication: GASTROOESOPHAGEAL REFLUX DISEASE
     Dosage: DAILY
     Route: 048
  4. PREVACID [Suspect]
     Route: 065
  5. URSODIOL [Concomitant]
  6. FOLIC ACID [Concomitant]
  7. MULTI-VITAMIN [Concomitant]
  8. NEXIUM [Suspect]
     Indication: PEPTIC ULCER
     Route: 048
     Dates: start: 20050301

REACTIONS (10)
  - HAEMOPTYSIS [None]
  - HEPATIC CIRRHOSIS [None]
  - CEREBROVASCULAR ACCIDENT [None]
  - VARICES OESOPHAGEAL [None]
  - GALLBLADDER POLYP [None]
  - FLATULENCE [None]
  - DRUG INEFFECTIVE [None]
  - GASTROINTESTINAL DISORDER [None]
  - ERUCTATION [None]
  - DIARRHOEA [None]
